FAERS Safety Report 15044732 (Version 2)
Quarter: 2018Q3

REPORT INFORMATION
  Report Type: Report from Study
  Country: NL (occurrence: NL)
  Receive Date: 20180621
  Receipt Date: 20180724
  Transmission Date: 20181010
  Serious: Yes (Death)
  Sender: FDA-Public Use
  Company Number: NL-TOLMAR, INC.-2018NL006415

PATIENT

DRUGS (3)
  1. ELIGARD [Suspect]
     Active Substance: LEUPROLIDE ACETATE
     Dosage: 45 MG, PER 6 MONTHS
     Route: 058
     Dates: start: 20170727
  2. ELIGARD [Suspect]
     Active Substance: LEUPROLIDE ACETATE
     Indication: PROSTATE CANCER
     Dosage: 45 MG, PER 6 MONTHS
     Route: 058
     Dates: start: 20160803
  3. ELIGARD [Suspect]
     Active Substance: LEUPROLIDE ACETATE
     Dosage: 45 MG, PER 6 MONTHS
     Route: 058
     Dates: start: 20180131

REACTIONS (2)
  - Cardiac death [Fatal]
  - Inappropriate schedule of drug administration [Unknown]
